FAERS Safety Report 5016409-1 (Version None)
Quarter: 2006Q2

REPORT INFORMATION
  Report Type: 
  Country: None (occurrence: None)
  Receive Date: 20060531
  Receipt Date: 20060531
  Transmission Date: 20061013
  Serious: Yes (Other)
  Sender: FDA-Public Use
  Company Number: None

PATIENT
  Age: 50 Year
  Sex: Male
  Weight: 74.8435 kg

DRUGS (1)
  1. LEVAQUIN [Suspect]
     Indication: SINUSITIS
     Dosage: 500 MG   DAILY   OTHER
     Route: 050
     Dates: start: 20051213, end: 20051220

REACTIONS (12)
  - ARTHROPATHY [None]
  - EXERCISE TOLERANCE DECREASED [None]
  - FATIGUE [None]
  - GASTROINTESTINAL DISORDER [None]
  - IMPAIRED WORK ABILITY [None]
  - MUSCLE ATROPHY [None]
  - MUSCLE TWITCHING [None]
  - NERVOUS SYSTEM DISORDER [None]
  - PARAESTHESIA [None]
  - TENDON DISORDER [None]
  - TINNITUS [None]
  - WEIGHT DECREASED [None]
